FAERS Safety Report 13356235 (Version 2)
Quarter: 2017Q2

REPORT INFORMATION
  Report Type: Spontaneous
  Country: JP (occurrence: JP)
  Receive Date: 20170321
  Receipt Date: 20170407
  Transmission Date: 20170830
  Serious: Yes (Other)
  Sender: FDA-Public Use
  Company Number: JP-MYLANLABS-2017M1016846

PATIENT

DRUGS (2)
  1. HUSCODE [Suspect]
     Active Substance: CHLORPHENIRAMINE MALEAT\DIHYDROCODEINE PHOSPHATE\METHYLEPHEDRINE HYDROCHLORIDE, DL-
     Indication: COUGH
     Dosage: 2 DF, TID
     Route: 048
     Dates: start: 20170310, end: 20170312
  2. ERYTHROCIN STEARATE [Suspect]
     Active Substance: ERYTHROMYCIN STEARATE
     Indication: NASOPHARYNGITIS
     Dosage: 800 MG, QD
     Route: 048
     Dates: start: 20170310, end: 20170312

REACTIONS (4)
  - Sleep disorder [Recovered/Resolved]
  - Delirium [Unknown]
  - Nightmare [Recovered/Resolved]
  - Somnolence [Recovered/Resolved]

NARRATIVE: CASE EVENT DATE: 20170310
